FAERS Safety Report 9757832 (Version 1)
Quarter: 2013Q4

REPORT INFORMATION
  Report Type: Report from Study
  Country: CA (occurrence: CA)
  Receive Date: 20131216
  Receipt Date: 20131216
  Transmission Date: 20140711
  Serious: Yes (Hospitalization)
  Sender: FDA-Public Use
  Company Number: CA-ROCHE-1313663

PATIENT
  Age: 60 Year
  Sex: Female

DRUGS (5)
  1. KADCYLA [Suspect]
     Indication: BREAST CANCER METASTATIC
     Route: 042
     Dates: start: 20131022
  2. HERCEPTIN [Suspect]
     Indication: PRODUCT USED FOR UNKNOWN INDICATION
     Route: 065
  3. MORPHINE [Concomitant]
     Route: 065
  4. GRAVOL [Concomitant]
     Route: 065
  5. FENTANYL [Concomitant]
     Route: 061

REACTIONS (4)
  - Disease progression [Unknown]
  - Dyspnoea [Unknown]
  - Blister [Unknown]
  - Skin fissures [Unknown]
